FAERS Safety Report 22145371 (Version 1)
Quarter: 2023Q1

REPORT INFORMATION
  Report Type: Spontaneous
  Country: FR (occurrence: FR)
  Receive Date: 20230328
  Receipt Date: 20230328
  Transmission Date: 20230417
  Serious: Yes (Other)
  Sender: FDA-Public Use
  Company Number: FR-TEVA-2023-FR-2870372

PATIENT
  Age: 66 Year
  Sex: Female

DRUGS (1)
  1. FLUOROURACIL [Suspect]
     Active Substance: FLUOROURACIL
     Indication: Intraocular pressure increased
     Dosage: 5 G/100 ML
     Dates: start: 20230216

REACTIONS (9)
  - Blindness unilateral [Not Recovered/Not Resolved]
  - Ulcerative keratitis [Unknown]
  - Cataract [Unknown]
  - Eye pain [Recovering/Resolving]
  - Corneal erosion [Unknown]
  - Vision blurred [Not Recovered/Not Resolved]
  - Intraocular pressure decreased [Unknown]
  - Product prescribing issue [Unknown]
  - Product use in unapproved indication [Unknown]

NARRATIVE: CASE EVENT DATE: 20230101
